FAERS Safety Report 7900196-0 (Version None)
Quarter: 2011Q4

REPORT INFORMATION
  Report Type: 
  Country: None (occurrence: None)
  Receive Date: 20111104
  Receipt Date: 20111021
  Transmission Date: 20120403
  Serious: Yes (Life-Threatening, Hospitalization)
  Sender: FDA-Public Use
  Company Number: INT_00030_2011

PATIENT
  Age: 24 Month
  Sex: Male

DRUGS (2)
  1. CEFTRIAXONE [Suspect]
     Indication: ACUTE CHEST SYNDROME
  2. CEFTRIAXONE [Suspect]
     Indication: PYREXIA

REACTIONS (4)
  - BLOOD PRESSURE DECREASED [None]
  - HAEMOLYSIS [None]
  - DRUG SPECIFIC ANTIBODY PRESENT [None]
  - UNRESPONSIVE TO STIMULI [None]
